FAERS Safety Report 6469623-2 (Version None)
Quarter: 2009Q4

REPORT INFORMATION
  Report Type: 
  Country: None (occurrence: None)
  Receive Date: 20091203
  Receipt Date: 20071101
  Transmission Date: 20100525
  Serious: Yes (Hospitalization, Other)
  Sender: FDA-Public Use
  Company Number: US-ELI_LILLY_AND_COMPANY-US200711000348

PATIENT
  Age: 49 Year
  Sex: Male

DRUGS (4)
  1. SYMBYAX [Suspect]
     Indication: BIPOLAR DISORDER
     Dosage: 1 D/F, UNK
     Dates: start: 20070403
  2. SYMBYAX [Suspect]
     Dosage: 1 D/F, UNK
     Dates: start: 20070508
  3. LITHIUM CARBONATE [Concomitant]
     Dosage: 300 MG, 3/D
     Dates: end: 20070508
  4. AMBIEN [Concomitant]

REACTIONS (5)
  - BLOOD ALKALINE PHOSPHATASE INCREASED [None]
  - JAUNDICE [None]
  - LIVER DISORDER [None]
  - PYREXIA [None]
  - TRANSAMINASES INCREASED [None]
